FAERS Safety Report 17459362 (Version 4)
Quarter: 2021Q2

REPORT INFORMATION
  Report Type: Report from Study
  Country: CO (occurrence: CO)
  Receive Date: 20200225
  Receipt Date: 20210420
  Transmission Date: 20210716
  Serious: Yes (Hospitalization, Other)
  Sender: FDA-Public Use
  Company Number: CO-JNJFOC-20160804697

PATIENT
  Age: 47 Year
  Sex: Female
  Weight: 60 kg

DRUGS (9)
  1. SIMPONI [Suspect]
     Active Substance: GOLIMUMAB
     Route: 058
     Dates: start: 20160629, end: 201804
  2. SIMPONI [Suspect]
     Active Substance: GOLIMUMAB
     Route: 058
     Dates: start: 20181017, end: 20191223
  3. SIMPONI [Suspect]
     Active Substance: GOLIMUMAB
     Indication: RHEUMATOID ARTHRITIS
     Route: 058
     Dates: start: 20150722
  4. PREDNISOLONE. [Concomitant]
     Active Substance: PREDNISOLONE
  5. ARAVA [Concomitant]
     Active Substance: LEFLUNOMIDE
  6. CALCIUM                            /00060701/ [Concomitant]
     Active Substance: CALCIUM
  7. SIMPONI [Suspect]
     Active Substance: GOLIMUMAB
     Dosage: THE LAST APPLICATION WAS ON 14?NOV?2020.
     Route: 058
     Dates: end: 20200411
  8. LEFLUNOMIDE. [Concomitant]
     Active Substance: LEFLUNOMIDE
  9. VITAMIN D [ERGOCALCIFEROL] [Concomitant]
     Active Substance: ERGOCALCIFEROL

REACTIONS (7)
  - Bone deformity [Recovered/Resolved]
  - Platelet count decreased [Recovered/Resolved]
  - Cartilage injury [Recovered/Resolved]
  - Pain [Recovered/Resolved]
  - Impaired healing [Recovered/Resolved]
  - Infection [Recovered/Resolved]
  - Hip arthroplasty [Recovered/Resolved]

NARRATIVE: CASE EVENT DATE: 2016
